FAERS Safety Report 15259755 (Version 2)
Quarter: 2018Q3

REPORT INFORMATION
  Report Type: Spontaneous
  Country: GB (occurrence: GB)
  Receive Date: 20180809
  Receipt Date: 20180830
  Transmission Date: 20181010
  Serious: Yes (Hospitalization, Other)
  Sender: FDA-Public Use
  Company Number: GB-VELOXIS PHARMACEUTICALS, INC.-2018VELGB1114

PATIENT

DRUGS (5)
  1. THYMOGLOBULIN [Suspect]
     Active Substance: LAPINE T-LYMPHOCYTE IMMUNE GLOBULIN
     Indication: HEART TRANSPLANT
     Route: 065
  2. THYMOGLOBULIN [Suspect]
     Active Substance: LAPINE T-LYMPHOCYTE IMMUNE GLOBULIN
     Indication: IMMUNOSUPPRESSANT DRUG THERAPY
  3. MYCOPHENOLATE MOFETIL. [Suspect]
     Active Substance: MYCOPHENOLATE MOFETIL
     Indication: IMMUNOSUPPRESSANT DRUG THERAPY
  4. MYCOPHENOLATE MOFETIL. [Suspect]
     Active Substance: MYCOPHENOLATE MOFETIL
     Indication: HEART TRANSPLANT
     Route: 065
  5. TACROLIMUS. [Suspect]
     Active Substance: TACROLIMUS
     Route: 065

REACTIONS (14)
  - Lymphopenia [Unknown]
  - Blood lactate dehydrogenase increased [Unknown]
  - Microcytic anaemia [Unknown]
  - Hepatosplenomegaly [Unknown]
  - Blood uric acid increased [Unknown]
  - Dehydration [Unknown]
  - Behcet^s syndrome [Recovering/Resolving]
  - Neutropenia [Unknown]
  - Weight decreased [Unknown]
  - Intentional product use issue [Unknown]
  - Heart transplant rejection [Unknown]
  - Sleep apnoea syndrome [Unknown]
  - Lymphadenopathy [Unknown]
  - Nephropathy [Unknown]
